FAERS Safety Report 8144804-0 (Version None)
Quarter: 2012Q1

REPORT INFORMATION
  Report Type: 
  Country: None (occurrence: None)
  Receive Date: 20120217
  Receipt Date: 20120216
  Transmission Date: 20120608
  Serious: Yes (Other)
  Sender: FDA-Public Use
  Company Number: US-BAYER-2012-016079

PATIENT
  Age: 76 Year
  Sex: Male
  Weight: 66 kg

DRUGS (20)
  1. PRIMIDONE [Concomitant]
     Dosage: 50 MG, UNK
  2. VITAMIN D [Concomitant]
     Dosage: 1000 U, UNK
  3. MAGNESIUM [Concomitant]
     Dosage: 300 MG, UNK
  4. SIMVASTATIN [Concomitant]
     Dosage: 5 MG, UNK
  5. COMBIVENT [Concomitant]
  6. ACETAMINOPHEN [Concomitant]
     Dosage: 500 MG, UNK
  7. BETASERON [Suspect]
     Dosage: 0.3 MG, QOD
     Route: 058
  8. AMBIEN [Concomitant]
     Dosage: 10 MG, UNK
  9. ADVAIR DISKUS 100/50 [Concomitant]
     Dosage: 250/50
  10. BETASERON [Suspect]
     Dosage: 0.25 ML, QOD
     Route: 058
  11. BETASERON [Suspect]
     Dosage: 0.75 ML, QOD
     Route: 058
  12. PLAVIX [Concomitant]
     Dosage: 75 MG, UNK
  13. FLOMAX [Concomitant]
     Dosage: 0.4 MG, UNK
  14. BETASERON [Suspect]
     Dosage: 0.5 ML, QOD
     Route: 058
  15. HYDROCHLOROTHIAZIDE [Concomitant]
     Dosage: 12.5 MG, UNK
  16. NIASPAN [Concomitant]
     Dosage: 750 MG, UNK
  17. OMEPRAZOLE [Concomitant]
     Dosage: 20 MG, UNK
  18. ARICEPT [Concomitant]
     Dosage: 10 MG, UNK
  19. FINASTERIDE [Concomitant]
     Dosage: 5 MG, UNK
  20. CLARITIN-D [Concomitant]
     Dosage: 5-120 MG

REACTIONS (3)
  - ABASIA [None]
  - NECK PAIN [None]
  - FALL [None]
